FAERS Safety Report 6993625-0 (Version None)
Quarter: 2010Q3

REPORT INFORMATION
  Report Type: 
  Country: None (occurrence: None)
  Receive Date: 20100917
  Receipt Date: 20070615
  Transmission Date: 20110219
  Serious: Yes (Other)
  Sender: FDA-Public Use
  Company Number: US-ASTRAZENECA-2006UW25192

PATIENT
  Age: 18813 Day
  Sex: Male
  Weight: 79.4 kg

DRUGS (16)
  1. SEROQUEL [Suspect]
     Indication: HALLUCINATION, AUDITORY
     Dosage: 200MG - 600MG
     Route: 048
     Dates: start: 19970101
  2. SEROQUEL [Suspect]
     Indication: DEPRESSION
     Dosage: 200MG - 600MG
     Route: 048
     Dates: start: 19970101
  3. SEROQUEL [Suspect]
     Indication: SLEEP DISORDER
     Dosage: 200MG - 600MG
     Route: 048
     Dates: start: 19970101
  4. SEROQUEL [Suspect]
     Dosage: 300 MG - 600 MG
     Route: 048
     Dates: start: 20020827
  5. SEROQUEL [Suspect]
     Dosage: 300 MG - 600 MG
     Route: 048
     Dates: start: 20020827
  6. SEROQUEL [Suspect]
     Dosage: 300 MG - 600 MG
     Route: 048
     Dates: start: 20020827
  7. METHADONE [Concomitant]
  8. HEROIN [Concomitant]
  9. RISPERDAL [Concomitant]
  10. RISPERDAL [Concomitant]
  11. ZYPREXA [Concomitant]
  12. BUSPIRONE HCL [Concomitant]
  13. SERTRALINE HYDROCHLORIDE [Concomitant]
  14. PAROXETINE HCL [Concomitant]
  15. HYDROCODONE [Concomitant]
     Indication: ARTHRITIS
  16. PRIMIDONE [Concomitant]
     Indication: CONVULSION

REACTIONS (5)
  - DIABETES MELLITUS [None]
  - DIABETES MELLITUS INADEQUATE CONTROL [None]
  - KETOACIDOSIS [None]
  - PANCREATITIS [None]
  - TYPE 2 DIABETES MELLITUS [None]
